FAERS Safety Report 9680036 (Version 1)
Quarter: 2013Q4

REPORT INFORMATION
  Report Type: Spontaneous
  Country: SG (occurrence: SG)
  Receive Date: 20131110
  Receipt Date: 20131110
  Transmission Date: 20140711
  Serious: Yes (Hospitalization, Other)
  Sender: FDA-Public Use
  Company Number: SG-009507513-1311SGP001777

PATIENT
  Age: 38 Year
  Sex: Female

DRUGS (3)
  1. GONADOTROPIN, CHORIONIC [Suspect]
  2. FOLLITROPIN ALFA [Concomitant]
  3. LUCRIN [Concomitant]

REACTIONS (4)
  - Ovarian hyperstimulation syndrome [Unknown]
  - Embolic stroke [Unknown]
  - Cerebrovascular accident [Unknown]
  - Exposure during pregnancy [Recovered/Resolved]
